FAERS Safety Report 25667638 (Version 2)
Quarter: 2025Q4

REPORT INFORMATION
  Report Type: Report from Study
  Country: US (occurrence: US)
  Receive Date: 20250811
  Receipt Date: 20251001
  Transmission Date: 20260117
  Serious: Yes (Hospitalization)
  Sender: JOHNSON AND JOHNSON
  Company Number: US-JNJFOC-20250260129

PATIENT
  Age: 55 Year
  Sex: Male
  Weight: 71.668 kg

DRUGS (8)
  1. UPTRAVI [Suspect]
     Active Substance: SELEXIPAG
     Indication: Pulmonary arterial hypertension
     Dosage: 200 MICROGRAMS IN AM AND 400 MICROGRAMS IN PM
     Route: 048
  2. UPTRAVI [Suspect]
     Active Substance: SELEXIPAG
     Dosage: 400 MCG IN THE MORNING AND 600 MCG IN THE EVENING?LOT EXPIRATION DATE: 31-JUL-2027
     Route: 048
  3. UPTRAVI [Suspect]
     Active Substance: SELEXIPAG
     Dosage: EXPIRATION DATE OF LOT NO: 2502822: 31-JUL-2025
     Route: 048
  4. UNSPECIFIED INGREDIENT [Suspect]
     Active Substance: UNSPECIFIED INGREDIENT
  5. PENICILLIN G [Suspect]
     Active Substance: PENICILLIN G
     Indication: Product used for unknown indication
  6. GABAPENTIN [Suspect]
     Active Substance: GABAPENTIN
     Indication: Product used for unknown indication
     Route: 065
     Dates: end: 20250917
  7. ALLOPURINOL [Suspect]
     Active Substance: ALLOPURINOL
     Indication: Product used for unknown indication
     Route: 065
  8. LIDOCAINE [Concomitant]
     Active Substance: LIDOCAINE
     Indication: Product used for unknown indication

REACTIONS (25)
  - Cardiac ablation [Unknown]
  - Accident at work [Unknown]
  - Pain [Unknown]
  - Memory impairment [Unknown]
  - Seizure [Unknown]
  - Hospitalisation [Unknown]
  - Somnolence [Unknown]
  - Adverse event [Unknown]
  - Spinal fracture [Unknown]
  - Back pain [Unknown]
  - Palpitations [Unknown]
  - Mass [Unknown]
  - Gout [Unknown]
  - Blood iron increased [Unknown]
  - Neuralgia [Unknown]
  - Anxiety [Unknown]
  - Tremor [Unknown]
  - Swollen tongue [Unknown]
  - Injury [Unknown]
  - Heart rate increased [Unknown]
  - Dizziness [Unknown]
  - Chest discomfort [Unknown]
  - COVID-19 [Unknown]
  - Hypersensitivity [Unknown]
  - Dyspnoea [Unknown]

NARRATIVE: CASE EVENT DATE: 20250201
